FAERS Safety Report 18396972 (Version 1)
Quarter: 2020Q4

REPORT INFORMATION
  Report Type: Spontaneous
  Country: US (occurrence: US)
  Receive Date: 20201018
  Receipt Date: 20201018
  Transmission Date: 20210114
  Serious: Yes (Other)
  Sender: FDA-Public Use
  Company Number: None

PATIENT
  Age: 76 Year
  Sex: Female
  Weight: 55.79 kg

DRUGS (1)
  1. ESTRADIOL 1MG TABLET [Suspect]
     Active Substance: ESTRADIOL

REACTIONS (8)
  - Asthenia [None]
  - Disorientation [None]
  - Adverse drug reaction [None]
  - Product quality issue [None]
  - Product formulation issue [None]
  - Cold sweat [None]
  - Nausea [None]
  - Movement disorder [None]

NARRATIVE: CASE EVENT DATE: 20200830
